FAERS Safety Report 7557336-5 (Version None)
Quarter: 2011Q2

REPORT INFORMATION
  Report Type: 
  Country: None (occurrence: None)
  Receive Date: 20110620
  Receipt Date: 20101102
  Transmission Date: 20111010
  Serious: Yes (Death, Hospitalization, Other)
  Sender: FDA-Public Use
  Company Number: PHEH2009US19057

PATIENT
  Sex: Male

DRUGS (19)
  1. FK 506 [Concomitant]
  2. MICONAZOLE [Concomitant]
  3. PREDNISONE [Concomitant]
  4. IG GAMMA [Concomitant]
  5. ASACOL [Concomitant]
  6. ACTIGALL [Concomitant]
  7. MEROPENEM [Concomitant]
  8. NIFEDIPINE [Concomitant]
  9. VITAMIN D [Concomitant]
  10. EXJADE [Suspect]
     Indication: APLASTIC ANAEMIA
     Dosage: 750 MG, DAILY
     Route: 048
     Dates: start: 20090321, end: 20090717
  11. EXJADE [Suspect]
     Indication: IRON OVERLOAD
  12. FAMVIR [Concomitant]
  13. LINEZOLID [Concomitant]
  14. TPN [Concomitant]
  15. EPOGEN [Concomitant]
  16. CYCLOSPORINE [Concomitant]
  17. ANIDULAFUNGIN [Concomitant]
  18. LEXAPRO [Concomitant]
  19. NEUPOGEN [Concomitant]

REACTIONS (44)
  - DEPRESSION [None]
  - ALANINE AMINOTRANSFERASE INCREASED [None]
  - HERPES SIMPLEX [None]
  - NEUTROPENIA [None]
  - BLOOD PHOSPHORUS INCREASED [None]
  - BLOOD UREA INCREASED [None]
  - DIARRHOEA [None]
  - EPISTAXIS [None]
  - HAEMATOCHEZIA [None]
  - COUGH [None]
  - BLOOD ALBUMIN DECREASED [None]
  - HAEMOGLOBIN DECREASED [None]
  - ANAEMIA [None]
  - ASTHENIA [None]
  - RHINORRHOEA [None]
  - BLOOD CHOLESTEROL DECREASED [None]
  - HAEMATOCRIT DECREASED [None]
  - LYMPHOCYTE COUNT INCREASED [None]
  - HYPOKALAEMIA [None]
  - GRAFT VERSUS HOST DISEASE [None]
  - VOMITING [None]
  - ANXIETY [None]
  - LEUKOPENIA [None]
  - BLOOD PYRUVIC ACID INCREASED [None]
  - THROMBOCYTOPENIA [None]
  - BLOOD GLUCOSE INCREASED [None]
  - HIGH DENSITY LIPOPROTEIN DECREASED [None]
  - NEUTROPHIL COUNT DECREASED [None]
  - DEATH [None]
  - PLATELET COUNT DECREASED [None]
  - FATIGUE [None]
  - FALL [None]
  - BLOOD ALKALINE PHOSPHATASE INCREASED [None]
  - C-REACTIVE PROTEIN INCREASED [None]
  - CYTOMEGALOVIRUS TEST POSITIVE [None]
  - FIBRIN D DIMER DECREASED [None]
  - PROTEIN TOTAL ABNORMAL [None]
  - PROTHROMBIN LEVEL INCREASED [None]
  - RED BLOOD CELL SEDIMENTATION RATE INCREASED [None]
  - HAEMORRHAGE [None]
  - ACTIVATED PARTIAL THROMBOPLASTIN TIME PROLONGED [None]
  - BLOOD LACTIC ACID ABNORMAL [None]
  - BLOOD TRIGLYCERIDES INCREASED [None]
  - WHITE BLOOD CELL COUNT DECREASED [None]
